FAERS Safety Report 9808915 (Version 2)
Quarter: 2015Q3

REPORT INFORMATION
  Report Type: Spontaneous
  Country: US (occurrence: US)
  Receive Date: 20140110
  Receipt Date: 20150916
  Transmission Date: 20151125
  Serious: No
  Sender: FDA-Public Use
  Company Number: US-PFIZER INC-2014008806

PATIENT
  Age: 56 Year
  Sex: Female

DRUGS (1)
  1. LYRICA [Suspect]
     Active Substance: PREGABALIN
     Indication: DIABETIC NEUROPATHY
     Dosage: 200 MG, 3X/DAY
     Route: 048
     Dates: start: 20150828

REACTIONS (2)
  - Weight increased [Unknown]
  - Vision blurred [Unknown]
